FAERS Safety Report 23871616 (Version 5)
Quarter: 2024Q2

REPORT INFORMATION
  Report Type: Report from Study
  Country: CA (occurrence: CA)
  Receive Date: 20240519
  Receipt Date: 20240614
  Transmission Date: 20240716
  Serious: Yes (Death)
  Sender: FDA-Public Use
  Company Number: CA-ABBVIE-5765399

PATIENT
  Age: 67 Year
  Sex: Male

DRUGS (10)
  1. VENETOCLAX [Suspect]
     Active Substance: VENETOCLAX
     Indication: Acute myeloid leukaemia
     Route: 048
     Dates: start: 20231005, end: 20231005
  2. VENETOCLAX [Suspect]
     Active Substance: VENETOCLAX
     Indication: Acute myeloid leukaemia
     Route: 048
     Dates: start: 20231007, end: 20231020
  3. VENETOCLAX [Suspect]
     Active Substance: VENETOCLAX
     Indication: Acute myeloid leukaemia
     Route: 048
     Dates: start: 20231006, end: 20231006
  4. VENETOCLAX [Suspect]
     Active Substance: VENETOCLAX
     Indication: Acute myeloid leukaemia
     Route: 048
     Dates: start: 20231020
  5. AZACITIDINE [Suspect]
     Active Substance: AZACITIDINE
     Indication: Acute myeloid leukaemia
     Route: 065
     Dates: start: 20231005, end: 20231011
  6. COVID-19 vaccine mRNA [Concomitant]
     Indication: COVID-19 prophylaxis
     Dosage: FIRST DOSE, ONE IN ONCE
     Route: 030
  7. COVID-19 vaccine mRNA [Concomitant]
     Indication: COVID-19 prophylaxis
     Dosage: SECOND DOSE, ONE IN ONCE
     Route: 030
  8. COVID-19 vaccine mRNA [Concomitant]
     Indication: COVID-19 prophylaxis
     Dosage: THIRD DOSE, ONE IN ONCE
     Route: 030
  9. COVID-19 vaccine mRNA [Concomitant]
     Indication: COVID-19 prophylaxis
     Dosage: FOURTH DOSE, ONE IN ONCE
     Route: 030
  10. COVID-19 vaccine mRNA [Concomitant]
     Indication: COVID-19 prophylaxis
     Dosage: FIFTH DOSE, ONE IN ONCE
     Route: 030

REACTIONS (1)
  - International normalised ratio increased [Fatal]

NARRATIVE: CASE EVENT DATE: 20231027
